FAERS Safety Report 8816923 (Version 1)
Quarter: 2012Q4

REPORT INFORMATION
  Report Type: Spontaneous
  Country: AT (occurrence: None)
  Receive Date: 20121002
  Receipt Date: 20121002
  Transmission Date: 20130627
  Serious: Yes (Hospitalization, Other)
  Sender: FDA-Public Use
  Company Number: 2012MA011545

PATIENT
  Age: 62 Year
  Sex: Female

DRUGS (20)
  1. FLUOXETINE [Concomitant]
  2. AMITRIPTYLINE [Concomitant]
  3. DIAZEPAM [Concomitant]
  4. L-THYROXIN [Concomitant]
  5. ACETYLSALICYLIC ACID [Concomitant]
  6. SIMVASTATIN [Concomitant]
  7. METOPROLOL [Concomitant]
  8. ANASTROZOL [Concomitant]
  9. NITROGLYCERINE [Concomitant]
  10. MACROGOL [Concomitant]
  11. HYDROMORPHONE [Concomitant]
  12. GABAPENTIN [Concomitant]
  13. ANASTROZOL [Concomitant]
  14. FULVESTRANT [Concomitant]
  15. BISPHOSPHONATE DERIVATIVE [Concomitant]
  16. EXEMESTAN [Concomitant]
  17. DOXORUBICIN-HYDROCHLORIDE [Concomitant]
  18. ALPRAZOLAM [Suspect]
     Dates: start: 201009
  19. FENTANYL [Concomitant]
  20. METAMIZOL [Concomitant]

REACTIONS (15)
  - Arthralgia [None]
  - Pain in extremity [None]
  - Neuralgia [None]
  - Hemiparesis [None]
  - Agitation [None]
  - Confusional state [None]
  - Hallucination, visual [None]
  - Delirium [None]
  - Pneumonia [None]
  - Staphylococcus test positive [None]
  - Cognitive disorder [None]
  - Sepsis [None]
  - Hypotension [None]
  - Renal failure [None]
  - Thrombocytopenia [None]
